FAERS Safety Report 24048404 (Version 1)
Quarter: 2024Q3

REPORT INFORMATION
  Report Type: Spontaneous
  Country: BE (occurrence: BE)
  Receive Date: 20240704
  Receipt Date: 20240704
  Transmission Date: 20241016
  Serious: Yes (Hospitalization)
  Sender: CELLTRION
  Company Number: BE-CELLTRION INC.-2024BE015727

PATIENT

DRUGS (10)
  1. INFLIXIMAB [Suspect]
     Active Substance: INFLIXIMAB
     Indication: Product used for unknown indication
     Dosage: UNK
     Dates: end: 20221122
  2. MEDROL [Concomitant]
     Active Substance: METHYLPREDNISOLONE
     Dosage: 32 MG, ONCE A DAY
  3. BRONCHO VAXOM [BACTERIA LYSATE NOS] [Concomitant]
     Dosage: 7 MG, ONCE A DAY
  4. ACETAMINOPHEN [Concomitant]
     Active Substance: ACETAMINOPHEN
     Dosage: 3 G, ONCE A DAY
  5. CALCIUM CARBONATE [Concomitant]
     Active Substance: CALCIUM CARBONATE
     Dosage: 1 G, ONCE A DAY
  6. FOSAMAX [Concomitant]
     Active Substance: ALENDRONATE SODIUM
     Dosage: 70 MG, ONCE A DAY
  7. CETIRIZINE HYDROCHLORIDE [Concomitant]
     Active Substance: CETIRIZINE HYDROCHLORIDE
     Dosage: 20 MG, ONCE A DAY
  8. OLMESARTAN MEDOXOMIL [Concomitant]
     Active Substance: OLMESARTAN MEDOXOMIL
     Dosage: 20 MG, ONCE A DAY
  9. ISONIAZID [Concomitant]
     Active Substance: ISONIAZID
     Dosage: 300 MG, ONCE A DAY
  10. PYRIDOXINE [Concomitant]
     Active Substance: PYRIDOXINE
     Dosage: 250 MG, 1/WEEK

REACTIONS (5)
  - Feeling hot [Recovered/Resolved]
  - Dyspnoea [Recovered/Resolved]
  - Ocular hyperaemia [Recovered/Resolved]
  - Dyspnoea [Recovered/Resolved]
  - Erythema [Recovered/Resolved]

NARRATIVE: CASE EVENT DATE: 20221122
